FAERS Safety Report 24034732 (Version 1)
Quarter: 2024Q3

REPORT INFORMATION
  Report Type: Spontaneous
  Country: US (occurrence: US)
  Receive Date: 20240701
  Receipt Date: 20240701
  Transmission Date: 20241016
  Serious: No
  Sender: ROCHE
  Company Number: US-ROCHE-10000004893

PATIENT
  Sex: Female

DRUGS (10)
  1. CAPECITABINE [Suspect]
     Active Substance: CAPECITABINE
     Indication: Product used for unknown indication
     Route: 065
  2. TUKYSA [Suspect]
     Active Substance: TUCATINIB
     Indication: Breast cancer
     Route: 048
  3. LOPERAMIDE [Concomitant]
     Active Substance: LOPERAMIDE
  4. ELIQUIS [Concomitant]
     Active Substance: APIXABAN
  5. SPIRONOLACTONE [Concomitant]
     Active Substance: SPIRONOLACTONE
  6. ZOFRAN [Concomitant]
     Active Substance: ONDANSETRON HYDROCHLORIDE
  7. PROCHLORPERAZINE [Concomitant]
     Active Substance: PROCHLORPERAZINE
  8. LIDOCAINE [Concomitant]
     Active Substance: LIDOCAINE
  9. PEPCID AC [Concomitant]
     Active Substance: FAMOTIDINE
  10. DEXAMETHASONE [Concomitant]
     Active Substance: DEXAMETHASONE

REACTIONS (3)
  - Fatigue [Not Recovered/Not Resolved]
  - Palmar-plantar erythrodysaesthesia syndrome [Not Recovered/Not Resolved]
  - Diarrhoea [Recovered/Resolved]
